FAERS Safety Report 14679714 (Version 2)
Quarter: 2018Q2

REPORT INFORMATION
  Report Type: Report from Study
  Country: CA (occurrence: CA)
  Receive Date: 20180326
  Receipt Date: 20180424
  Transmission Date: 20180711
  Serious: Yes (Other)
  Sender: FDA-Public Use
  Company Number: CA-SA-2017SA015988

PATIENT
  Age: 65 Year
  Sex: Male

DRUGS (12)
  1. FAMPYRA [Concomitant]
     Active Substance: DALFAMPRIDINE
     Route: 065
  2. MYRBETRIQ [Concomitant]
     Active Substance: MIRABEGRON
     Route: 065
  3. REACTINE [CETIRIZINE HYDROCHLORIDE] [Concomitant]
     Active Substance: CETIRIZINE HYDROCHLORIDE
     Indication: PREMEDICATION
     Route: 048
     Dates: start: 20170125
  4. ASA [Concomitant]
     Active Substance: ASPIRIN
     Route: 065
  5. GABAPENTIN. [Concomitant]
     Active Substance: GABAPENTIN
     Route: 065
  6. LEMTRADA [Suspect]
     Active Substance: ALEMTUZUMAB
     Indication: RELAPSING-REMITTING MULTIPLE SCLEROSIS
     Route: 041
     Dates: start: 20170125, end: 20170127
  7. SOLU-MEDROL [Concomitant]
     Active Substance: METHYLPREDNISOLONE SODIUM SUCCINATE
     Indication: PREMEDICATION
     Route: 042
     Dates: start: 20170125, end: 20170127
  8. MODAFINIL. [Concomitant]
     Active Substance: MODAFINIL
     Route: 065
  9. BENADRYL [Concomitant]
     Active Substance: DIPHENHYDRAMINE HYDROCHLORIDE
     Indication: PREMEDICATION
     Dosage: ROUTE: PO/IV
     Route: 065
     Dates: start: 20170125, end: 20170127
  10. ACYCLOVIR. [Concomitant]
     Active Substance: ACYCLOVIR
     Indication: PREMEDICATION
     Route: 048
     Dates: start: 20170125
  11. TYLENOL [Concomitant]
     Active Substance: ACETAMINOPHEN
     Indication: PREMEDICATION
     Route: 048
     Dates: start: 20170125, end: 20170127
  12. RANITIDINE. [Concomitant]
     Active Substance: RANITIDINE
     Indication: PREMEDICATION
     Route: 048
     Dates: start: 20170125, end: 20170127

REACTIONS (34)
  - Blood test abnormal [Recovered/Resolved]
  - Haemoglobin decreased [Recovered/Resolved]
  - White blood cells urine positive [Not Recovered/Not Resolved]
  - Lymphocyte percentage decreased [Not Recovered/Not Resolved]
  - Mean cell haemoglobin concentration decreased [Not Recovered/Not Resolved]
  - Blood pressure increased [Recovered/Resolved]
  - Protein urine present [Not Recovered/Not Resolved]
  - Blood urine present [Not Recovered/Not Resolved]
  - Glucose urine present [Not Recovered/Not Resolved]
  - Lipaemic index score [Recovered/Resolved]
  - Monocyte percentage increased [Recovered/Resolved]
  - Red blood cells urine positive [Not Recovered/Not Resolved]
  - Flatulence [Recovered/Resolved]
  - Urinary casts [Not Recovered/Not Resolved]
  - Red cell distribution width increased [Recovered/Resolved]
  - Neutrophil percentage increased [Not Recovered/Not Resolved]
  - Urine analysis abnormal [Not Recovered/Not Resolved]
  - Insomnia [Recovering/Resolving]
  - Red blood cell count decreased [Not Recovered/Not Resolved]
  - Crystal urine present [Not Recovered/Not Resolved]
  - Lymphocyte count decreased [Not Recovered/Not Resolved]
  - Glomerular filtration rate decreased [Not Recovered/Not Resolved]
  - Urine abnormality [Not Recovered/Not Resolved]
  - Blood creatinine increased [Not Recovered/Not Resolved]
  - Granulocyte count increased [Not Recovered/Not Resolved]
  - Flushing [Recovered/Resolved]
  - Headache [Recovered/Resolved]
  - White blood cells urine positive [Unknown]
  - Nephrolithiasis [Not Recovered/Not Resolved]
  - Haematocrit decreased [Recovered/Resolved]
  - Bacterial test [Not Recovered/Not Resolved]
  - Granulocyte percentage [Not Recovered/Not Resolved]
  - Diarrhoea [Recovered/Resolved]
  - Pollakiuria [Recovering/Resolving]

NARRATIVE: CASE EVENT DATE: 20170125
